FAERS Safety Report 25498125 (Version 2)
Quarter: 2025Q3

REPORT INFORMATION
  Report Type: Spontaneous
  Country: EU (occurrence: EU)
  Receive Date: 20250701
  Receipt Date: 20250801
  Transmission Date: 20251021
  Serious: Yes (Death)
  Sender: Kenvue
  Company Number: EU-LABORATORIOS LICONSA S.A.-2506SE04804

PATIENT

DRUGS (5)
  1. LOPERAMIDE HYDROCHLORIDE [Suspect]
     Active Substance: LOPERAMIDE HYDROCHLORIDE
     Indication: Gastrointestinal stoma complication
     Dosage: 8 DOSAGE FORM, ONCE A DAY, (8 LOPERAMIDE TABLETS A DAY)
     Route: 065
  2. LOPERAMIDE HYDROCHLORIDE [Suspect]
     Active Substance: LOPERAMIDE HYDROCHLORIDE
     Dosage: 15 DOSAGE FORM, ONCE A DAY (THE FIRST DOCTOR SUGGESTED THAT THE PATIENT COULD INCREASE THE LOPERAMID
     Route: 065
  3. LOPERAMIDE HYDROCHLORIDE [Suspect]
     Active Substance: LOPERAMIDE HYDROCHLORIDE
     Dosage: 8 DOSAGE FORM, ONCE A DAY, (THE FIRST DOCTOR THEN RENEWED LOPERAMIDE WITH THE SAME DOSAGE AS BEFORE,
     Route: 065
  4. LOPERAMIDE HYDROCHLORIDE [Suspect]
     Active Substance: LOPERAMIDE HYDROCHLORIDE
     Dosage: 15 DOSAGE FORM, ONCE A DAY, (THE SECOND DOCTOR RENEWED THE PRESCRIPTION FOR LOPERAMIDE WITH THE SAME
     Route: 065
  5. LOPERAMIDE HYDROCHLORIDE [Suspect]
     Active Substance: LOPERAMIDE HYDROCHLORIDE
     Dosage: 10 DOSAGE FORM, ONCE A DAY, (THE SECOND DOCTOR STATES THAT THE PATIENT HAD NOT EXCEEDED THE DOSAGE O
     Route: 065

REACTIONS (3)
  - Toxicity to various agents [Fatal]
  - Prescribed overdose [Fatal]
  - Product prescribing error [Fatal]
